FAERS Safety Report 21776919 (Version 1)
Quarter: 2022Q4

REPORT INFORMATION
  Report Type: Report from Study
  Country: US (occurrence: US)
  Receive Date: 20221226
  Receipt Date: 20221226
  Transmission Date: 20230113
  Serious: No
  Sender: FDA-Public Use
  Company Number: US-ABBVIE-4202459

PATIENT
  Sex: Male

DRUGS (1)
  1. RINVOQ [Suspect]
     Active Substance: UPADACITINIB
     Indication: Psoriasis
     Route: 048

REACTIONS (6)
  - Nasal congestion [Recovering/Resolving]
  - Sinusitis [Recovered/Resolved]
  - Dysuria [Not Recovered/Not Resolved]
  - Upper respiratory tract congestion [Recovering/Resolving]
  - Cough [Recovering/Resolving]
  - Nasopharyngitis [Recovering/Resolving]

NARRATIVE: CASE EVENT DATE: 20220101
